FAERS Safety Report 12580915 (Version 1)
Quarter: 2016Q3

REPORT INFORMATION
  Report Type: Spontaneous
  Country: JP (occurrence: JP)
  Receive Date: 20160721
  Receipt Date: 20160721
  Transmission Date: 20161109
  Serious: Yes (Other)
  Sender: FDA-Public Use
  Company Number: JP-BRISTOL-MYERS SQUIBB COMPANY-BMS-2016-042036

PATIENT
  Sex: Female

DRUGS (8)
  1. BELSOMRA [Suspect]
     Active Substance: SUVOREXANT
     Indication: PRODUCT USED FOR UNKNOWN INDICATION
     Dosage: 320 MG (20 MG X 16 TABS)
     Route: 048
  2. ZOPICLONE [Suspect]
     Active Substance: ZOPICLONE
     Indication: PRODUCT USED FOR UNKNOWN INDICATION
     Dosage: 100 MG, (10 MG X 10 TABS) SIINGLE
     Route: 048
  3. JZOLOFT [Suspect]
     Active Substance: SERTRALINE HYDROCHLORIDE
     Indication: PRODUCT USED FOR UNKNOWN INDICATION
     Dosage: 400 MG, (25 MG X 16 TABS) SINGLE
     Route: 048
  4. REFLEX [Suspect]
     Active Substance: MIRTAZAPINE
     Indication: PRODUCT USED FOR UNKNOWN INDICATION
     Dosage: 240 MG (15 MG X 16 TABS) SINGLE
     Route: 048
  5. ABILIFY [Suspect]
     Active Substance: ARIPIPRAZOLE
     Indication: DEPRESSION
     Dosage: 3 MG, UNK
     Route: 065
  6. ABILIFY [Suspect]
     Active Substance: ARIPIPRAZOLE
     Dosage: 96 MG, (6 MG X 16 TABS) SINGLE
     Route: 048
  7. DEPAKENE [Suspect]
     Active Substance: VALPROIC ACID
     Indication: PRODUCT USED FOR UNKNOWN INDICATION
     Dosage: 11600 MG, (200 MG X 58 TABLETS)
     Route: 048
  8. TRAZODONE [Suspect]
     Active Substance: TRAZODONE HYDROCHLORIDE
     Indication: PRODUCT USED FOR UNKNOWN INDICATION
     Dosage: 50 MG (25 MG X 2 TABS) SINGLE
     Route: 048

REACTIONS (5)
  - Sedation [Unknown]
  - Asthenia [Recovered/Resolved]
  - Altered state of consciousness [Unknown]
  - Intentional overdose [Unknown]
  - Toxicity to various agents [Unknown]
